FAERS Safety Report 4742468-7 (Version None)
Quarter: 2005Q3

REPORT INFORMATION
  Report Type: 
  Country: None (occurrence: None)
  Receive Date: 20050810
  Receipt Date: 20050810
  Transmission Date: 20060218
  Serious: Yes (Hospitalization)
  Sender: FDA-Public Use
  Company Number: None

PATIENT
  Age: 64 Year
  Sex: Male
  Weight: 114.76 kg

DRUGS (5)
  1. ETODOLAC [Suspect]
     Indication: PAIN
     Dosage: 400 MG BID
     Dates: start: 20040707, end: 20050514
  2. . [Concomitant]
  3. . [Concomitant]
  4. . [Concomitant]
  5. . [Concomitant]

REACTIONS (2)
  - DIZZINESS [None]
  - MELAENA [None]
